FAERS Safety Report 25753774 (Version 1)
Quarter: 2025Q3

REPORT INFORMATION
  Report Type: Spontaneous
  Country: US (occurrence: US)
  Receive Date: 20250903
  Receipt Date: 20250903
  Transmission Date: 20251020
  Serious: No
  Sender: AUROBINDO
  Company Number: US-AUROBINDO-AUR-APL-2025-018537

PATIENT

DRUGS (1)
  1. PAROXETINE HYDROCHLORIDE [Suspect]
     Active Substance: PAROXETINE HYDROCHLORIDE
     Indication: Anger
     Dosage: 5MG/DAY (A HALF PILL OF THE 10MG PILLS)
     Route: 065

REACTIONS (3)
  - Anger [Unknown]
  - Drug ineffective [Unknown]
  - Product substitution issue [Unknown]
